FAERS Safety Report 6222891-4 (Version None)
Quarter: 2009Q2

REPORT INFORMATION
  Report Type: 
  Country: None (occurrence: None)
  Receive Date: 20090611
  Receipt Date: 20090605
  Transmission Date: 20091009
  Serious: Yes (Hospitalization, Other)
  Sender: FDA-Public Use
  Company Number: FR-BRISTOL-MYERS SQUIBB COMPANY-14625354

PATIENT
  Age: 56 Year
  Sex: Male
  Weight: 68 kg

DRUGS (6)
  1. ABILIFY [Suspect]
     Indication: PSYCHOTIC DISORDER
     Route: 048
     Dates: start: 20080708, end: 20090417
  2. CYMBALTA [Suspect]
     Indication: COMPLEX REGIONAL PAIN SYNDROME
     Dosage: REINTRODUCED ON : 10-APR-2009
     Route: 048
     Dates: start: 20080128, end: 20090120
  3. FENOFIBRATE [Concomitant]
     Indication: HYPERCHOLESTEROLAEMIA
     Route: 048
     Dates: start: 20070528
  4. ATARAX [Concomitant]
     Indication: ANXIETY
     Route: 048
     Dates: start: 20080719
  5. THERALENE [Concomitant]
     Indication: INSOMNIA
     Dosage: X DROPS/D
     Route: 048
     Dates: start: 20090512, end: 20090522
  6. DIANTALVIC [Concomitant]
     Route: 048
     Dates: start: 20080527

REACTIONS (7)
  - DYSPHAGIA [None]
  - ENURESIS [None]
  - HYPOTONIA [None]
  - MUSCLE ATROPHY [None]
  - MUSCULAR WEAKNESS [None]
  - PAIN IN EXTREMITY [None]
  - SPEECH DISORDER [None]
